FAERS Safety Report 9009667 (Version 3)
Quarter: 2013Q1

REPORT INFORMATION
  Report Type: Spontaneous
  Country: SE (occurrence: SE)
  Receive Date: 20130110
  Receipt Date: 20130220
  Transmission Date: 20140127
  Serious: Yes (Hospitalization)
  Sender: FDA-Public Use
  Company Number: SE-ASTRAZENECA-2013SE00147

PATIENT
  Age: 60 Year
  Sex: Female

DRUGS (2)
  1. ZOMIG [Suspect]
     Indication: HEADACHE
     Route: 045
     Dates: start: 20121002, end: 20121002
  2. METOPROLOL [Concomitant]

REACTIONS (7)
  - Syncope [Recovered/Resolved]
  - Fatigue [Recovered/Resolved]
  - Inappropriate antidiuretic hormone secretion [Recovered/Resolved]
  - Diarrhoea [Recovered/Resolved]
  - Hyponatraemia [Recovered/Resolved]
  - Nausea [Recovered/Resolved]
  - Vomiting [Recovered/Resolved]
